FAERS Safety Report 8377918-0 (Version None)
Quarter: 2012Q2

REPORT INFORMATION
  Report Type: 
  Country: None (occurrence: None)
  Receive Date: 20120522
  Receipt Date: 20120510
  Transmission Date: 20120825
  Serious: No
  Sender: FDA-Public Use
  Company Number: DE-ELI_LILLY_AND_COMPANY-DE201203005432

PATIENT
  Age: 54 Year
  Sex: Female

DRUGS (7)
  1. SERTRALINE HYDROCHLORIDE [Concomitant]
     Dosage: 150 MG, UNK
     Route: 030
     Dates: start: 20120302
  2. ZYPREXA [Suspect]
     Dosage: 5 MG, UNK
     Route: 048
     Dates: start: 20120301, end: 20120301
  3. ZYPREXA [Suspect]
     Indication: MAJOR DEPRESSION
     Dosage: 2.5 MG, UNK
     Route: 048
     Dates: start: 20120223
  4. ZYPREXA [Suspect]
     Dosage: UNK
     Dates: end: 20120320
  5. SERTRALINE HYDROCHLORIDE [Concomitant]
     Dosage: UNK
     Dates: end: 20120320
  6. ZYPREXA [Suspect]
     Dosage: 10 MG, UNK
     Route: 048
     Dates: start: 20120302
  7. ZYPREXA [Suspect]
     Dosage: 5 MG, UNK
     Route: 048
     Dates: start: 20120301

REACTIONS (5)
  - LEUKOPENIA [None]
  - ASPARTATE AMINOTRANSFERASE INCREASED [None]
  - ALANINE AMINOTRANSFERASE INCREASED [None]
  - OFF LABEL USE [None]
  - GAMMA-GLUTAMYLTRANSFERASE INCREASED [None]
